FAERS Safety Report 6511133-8 (Version None)
Quarter: 2009Q4

REPORT INFORMATION
  Report Type: 
  Country: None (occurrence: None)
  Receive Date: 20091217
  Receipt Date: 20091203
  Transmission Date: 20100525
  Serious: Yes (Disabling)
  Sender: FDA-Public Use
  Company Number: 2009PL000313

PATIENT
  Sex: Female

DRUGS (1)
  1. IMURAN [Suspect]
     Indication: SYSTEMIC LUPUS ERYTHEMATOSUS
     Dosage: QD;PO
     Route: 048
     Dates: start: 20060101, end: 20070101

REACTIONS (1)
  - MYELODYSPLASTIC SYNDROME [None]
